FAERS Safety Report 11074807 (Version 1)
Quarter: 2015Q2

REPORT INFORMATION
  Report Type: Spontaneous
  Country: US (occurrence: US)
  Receive Date: 20150429
  Receipt Date: 20150429
  Transmission Date: 20150821
  Serious: Yes (Other)
  Sender: FDA-Public Use
  Company Number: US-BAYER-2015-162319

PATIENT
  Age: 25 Year
  Sex: Female

DRUGS (2)
  1. DIAMOX SEQUELS [Concomitant]
     Active Substance: ACETAZOLAMIDE
  2. MIRENA [Suspect]
     Active Substance: LEVONORGESTREL
     Dosage: 20 MCG/24HR, CONT
     Route: 015
     Dates: start: 20090422, end: 201305

REACTIONS (11)
  - Headache [None]
  - Pain [None]
  - Migraine [None]
  - Diplopia [None]
  - Vision blurred [None]
  - Tinnitus [None]
  - Benign intracranial hypertension [None]
  - Visual impairment [None]
  - Intracranial pressure increased [None]
  - Papilloedema [None]
  - Injury [None]

NARRATIVE: CASE EVENT DATE: 201001
